FAERS Safety Report 12647688 (Version 2)
Quarter: 2016Q4

REPORT INFORMATION
  Report Type: Report from Study
  Country: FR (occurrence: FR)
  Receive Date: 20160812
  Receipt Date: 20161205
  Transmission Date: 20170207
  Serious: Yes (Death, Other)
  Sender: FDA-Public Use
  Company Number: FR-CELGENEUS-FRA-2016081365

PATIENT

DRUGS (9)
  1. COUMADIN [Concomitant]
     Active Substance: WARFARIN SODIUM
     Indication: THROMBOSIS PROPHYLAXIS
     Route: 065
  2. REVLIMID [Suspect]
     Active Substance: LENALIDOMIDE
     Indication: MANTLE CELL LYMPHOMA
     Dosage: 15 MG
     Route: 048
  3. ASPIRIN. [Concomitant]
     Active Substance: ASPIRIN
     Indication: THROMBOSIS PROPHYLAXIS
     Dosage: 100 MG
     Route: 065
  4. REVLIMID [Suspect]
     Active Substance: LENALIDOMIDE
     Dosage: 7.5 MG
     Route: 048
  5. OBINUTUZUMAB [Suspect]
     Active Substance: OBINUTUZUMAB
     Indication: MANTLE CELL LYMPHOMA
     Dosage: 1000 MG
     Route: 041
  6. LOW MOLECULAR WEIGHT HEPARIN [Concomitant]
     Active Substance: UNSPECIFIED INGREDIENT
     Indication: THROMBOSIS PROPHYLAXIS
     Route: 065
  7. OBINUTUZUMAB [Suspect]
     Active Substance: OBINUTUZUMAB
     Indication: DIFFUSE LARGE B-CELL LYMPHOMA
     Dosage: 1000 MG
     Route: 041
  8. REVLIMID [Suspect]
     Active Substance: LENALIDOMIDE
     Indication: DIFFUSE LARGE B-CELL LYMPHOMA
     Dosage: 15 MG
     Route: 048
  9. OBINUTUZUMAB [Suspect]
     Active Substance: OBINUTUZUMAB
     Dosage: 1000 MG
     Route: 041

REACTIONS (23)
  - Diarrhoea [Unknown]
  - Lymphopenia [Unknown]
  - Weight decreased [Unknown]
  - Decreased appetite [Unknown]
  - Oedema peripheral [Unknown]
  - Thrombocytopenia [Unknown]
  - Muscle spasms [Unknown]
  - Dyspnoea [Unknown]
  - Thrombosis [Unknown]
  - Anaemia [Unknown]
  - Asthenia [Unknown]
  - Vomiting [Unknown]
  - Lymphoma [Fatal]
  - Infusion related reaction [Unknown]
  - Infection [Unknown]
  - Cough [Unknown]
  - Fatigue [Unknown]
  - Neutropenia [Unknown]
  - Febrile neutropenia [Unknown]
  - Constipation [Unknown]
  - Tumour flare [Unknown]
  - Nausea [Unknown]
  - Leukopenia [Unknown]
